FAERS Safety Report 5751881-0 (Version None)
Quarter: 2008Q2

REPORT INFORMATION
  Report Type: 
  Country: None (occurrence: None)
  Receive Date: 20080527
  Receipt Date: 20080506
  Transmission Date: 20081010
  Serious: Yes (Death, Other)
  Sender: FDA-Public Use
  Company Number: 2008AL003610

PATIENT
  Age: 56 Year
  Sex: Female
  Weight: 77.1115 kg

DRUGS (4)
  1. DIGOXIN                        (AMIDE) [Suspect]
     Indication: PALPITATIONS
     Dosage: DAILY PO
     Route: 048
     Dates: start: 20070720, end: 20080208
  2. METFORMAN [Concomitant]
  3. CELEXA [Concomitant]
  4. UNSPECIFIED CROHN'S DISEASE MEDICATION [Concomitant]

REACTIONS (2)
  - ARRHYTHMIA [None]
  - PALPITATIONS [None]
